FAERS Safety Report 21222980 (Version 1)
Quarter: 2022Q3

REPORT INFORMATION
  Report Type: Spontaneous
  Country: BE (occurrence: TR)
  Receive Date: 20220817
  Receipt Date: 20220817
  Transmission Date: 20221026
  Serious: Yes (Hospitalization, Other)
  Sender: FDA-Public Use
  Company Number: BE-AMGEN-TURSP2022138187

PATIENT
  Age: 2 Month
  Sex: Male

DRUGS (2)
  1. FILGRASTIM [Suspect]
     Active Substance: FILGRASTIM
     Indication: Neutropenia
     Dosage: UNK, Q3WK
     Route: 065
  2. EMPAGLIFLOZIN [Concomitant]
     Active Substance: EMPAGLIFLOZIN
     Dosage: UNK

REACTIONS (7)
  - Mastoiditis [Unknown]
  - Neutrophil count decreased [Not Recovered/Not Resolved]
  - Ear, nose and throat infection [Unknown]
  - Infection [Unknown]
  - Gastroenteritis [Unknown]
  - Sinusitis [Unknown]
  - Therapeutic product effect incomplete [Unknown]
